FAERS Safety Report 9144128 (Version 1)
Quarter: 2013Q1

REPORT INFORMATION
  Report Type: Spontaneous
  Country: GB (occurrence: GB)
  Receive Date: 20130306
  Receipt Date: 20130306
  Transmission Date: 20140127
  Serious: Yes (Disabling)
  Sender: FDA-Public Use
  Company Number: GB-EISAI INC-E2007-01107-SPO-GB

PATIENT
  Age: 51 Year
  Sex: Male

DRUGS (12)
  1. FYCOMPA [Suspect]
     Indication: EPILEPSY
     Route: 048
     Dates: start: 20130102, end: 20130104
  2. FYCOMPA [Suspect]
     Route: 048
     Dates: start: 20130105, end: 20130107
  3. FYCOMPA [Suspect]
     Route: 048
     Dates: start: 20130108, end: 20130113
  4. FYCOMPA [Suspect]
     Route: 048
     Dates: start: 20130114
  5. LACOSAMIDE [Concomitant]
     Indication: EPILEPSY
     Route: 048
     Dates: start: 201212, end: 20130114
  6. LACOSAMIDE [Concomitant]
     Route: 048
     Dates: start: 20130115, end: 20130117
  7. LACOSAMIDE [Concomitant]
     Dosage: (250 MG/DAY)
     Route: 048
     Dates: start: 20130118, end: 20130120
  8. LACOSAMIDE [Concomitant]
     Route: 048
     Dates: start: 20130121, end: 20130123
  9. LACOSAMIDE [Concomitant]
     Route: 048
     Dates: start: 20130124, end: 20130126
  10. LEVETIRACETAM [Concomitant]
     Indication: EPILEPSY
     Dosage: UNKNOWN
     Route: 048
     Dates: end: 20121202
  11. LEVETIRACETAM [Concomitant]
     Route: 048
     Dates: start: 20121203
  12. OXCARBAZEPINE [Concomitant]
     Indication: PRODUCT USED FOR UNKNOWN INDICATION
     Route: 048

REACTIONS (6)
  - Psychotic disorder [Recovering/Resolving]
  - Emotional distress [Unknown]
  - Abnormal behaviour [Unknown]
  - Delusional perception [Recovering/Resolving]
  - Paranoia [Recovering/Resolving]
  - Confusional state [Unknown]
